FAERS Safety Report 17914393 (Version 1)
Quarter: 2020Q3

REPORT INFORMATION
  Report Type: Report from Study
  Country: MX (occurrence: MX)
  Receive Date: 20200618
  Receipt Date: 20200618
  Transmission Date: 20201104
  Serious: Yes (Other)
  Sender: FDA-Public Use
  Company Number: PHHY2017MX023205

PATIENT
  Sex: Female
  Weight: 61 kg

DRUGS (2)
  1. CO?DIOVAN [Suspect]
     Active Substance: HYDROCHLOROTHIAZIDE\VALSARTAN
     Indication: CEREBROVASCULAR ACCIDENT
     Dosage: 0.5 DF, QD (HYDROCHLOROTHIAZIDE 25 MG, VALSARTAN 160 MG)
     Route: 065
  2. DIOVAN [Suspect]
     Active Substance: VALSARTAN
     Indication: HYPERTENSION
     Dosage: 80 MG (HALF), QD
     Route: 048

REACTIONS (6)
  - Hypoacusis [Unknown]
  - Diabetes mellitus [Unknown]
  - Product use in unapproved indication [Not Recovered/Not Resolved]
  - Product prescribing error [Unknown]
  - Hypertension [Unknown]
  - Wrong technique in product usage process [Unknown]
